FAERS Safety Report 16428988 (Version 1)
Quarter: 2019Q2

REPORT INFORMATION
  Report Type: Report from Study
  Country: None (occurrence: US)
  Receive Date: 20190613
  Receipt Date: 20190613
  Transmission Date: 20190711
  Serious: Yes (Other)
  Sender: FDA-Public Use
  Company Number: US-ABBVIE-19K-163-2776977-00

PATIENT
  Sex: Female
  Weight: 59.02 kg

DRUGS (2)
  1. HUMIRA [Suspect]
     Active Substance: ADALIMUMAB
     Indication: PSORIATIC ARTHROPATHY
     Dosage: AT LEAST SINCE -JUL-2009
     Route: 058
     Dates: end: 20190425
  2. HUMIRA [Suspect]
     Active Substance: ADALIMUMAB
     Route: 058
     Dates: start: 20190507

REACTIONS (5)
  - Hypertrophic cardiomyopathy [Recovering/Resolving]
  - Cardiac ablation [Unknown]
  - Dyspnoea [Recovering/Resolving]
  - Cardiac operation [Unknown]
  - Mitral valve calcification [Recovering/Resolving]

NARRATIVE: CASE EVENT DATE: 2017
